FAERS Safety Report 9746493 (Version 1)
Quarter: 2013Q4

REPORT INFORMATION
  Report Type: Spontaneous
  Country: US (occurrence: US)
  Receive Date: 20131211
  Receipt Date: 20131211
  Transmission Date: 20140711
  Serious: Yes (Hospitalization)
  Sender: FDA-Public Use
  Company Number: US-BAYER-2013-151116

PATIENT
  Age: 18 Year
  Sex: Female

DRUGS (7)
  1. YAZ [Suspect]
     Indication: MENSTRUAL CYCLE MANAGEMENT
  2. GARDASIL [Concomitant]
     Dosage: IM, RIGHT DELTOID
     Route: 030
     Dates: start: 20080109
  3. HEPATITIS A VACCINE [Concomitant]
     Dosage: IM, LEFT DELTOID
     Route: 030
     Dates: start: 20080109
  4. PYRIDIUM [Concomitant]
     Dosage: 200 MG, TID
     Route: 048
  5. MACROBID [Concomitant]
     Dosage: 100 MG, AT BEDTIME
     Route: 048
  6. KEFLEX [Concomitant]
     Dosage: 500 MG, TID, 10 DAYS
     Route: 048
  7. CEPHALEXIN [Concomitant]

REACTIONS (1)
  - Pulmonary embolism [None]
